FAERS Safety Report 8417893-3 (Version None)
Quarter: 2012Q2

REPORT INFORMATION
  Report Type: 
  Country: None (occurrence: None)
  Receive Date: 20120607
  Receipt Date: 20120529
  Transmission Date: 20120825
  Serious: No
  Sender: FDA-Public Use
  Company Number: US-PFIZER INC-2012126840

PATIENT
  Sex: Female

DRUGS (2)
  1. LYRICA [Suspect]
     Indication: NEUROPATHY PERIPHERAL
     Dosage: 50 MG, UNK
  2. LYRICA [Suspect]
     Dosage: 50 MG, 3X/DAY

REACTIONS (5)
  - FUNGAL INFECTION [None]
  - URTICARIA [None]
  - PRURITUS [None]
  - ASTHENIA [None]
  - INSOMNIA [None]
